FAERS Safety Report 10598148 (Version 1)
Quarter: 2014Q4

REPORT INFORMATION
  Report Type: Spontaneous
  Country: US (occurrence: None)
  Receive Date: 20141112
  Receipt Date: 20141112
  Transmission Date: 20150529
  Serious: No
  Sender: FDA-Public Use
  Company Number: US-017417

PATIENT
  Age: 62 Year
  Sex: Male
  Weight: 68.95 kg

DRUGS (3)
  1. PREPOPIK [Suspect]
     Active Substance: ANHYDROUS CITRIC ACID\MAGNESIUM OXIDE\SODIUM PICOSULFATE
     Indication: BOWEL PREPARATION
     Dosage: FIRST PACKET: 3:00 PM; SECOND PACKET: 7:00 PM
     Route: 048
     Dates: start: 20141013, end: 20141013
  2. NORPACE [Concomitant]
     Active Substance: DISOPYRAMIDE PHOSPHATE
  3. XANAX XR [Concomitant]
     Active Substance: ALPRAZOLAM

REACTIONS (3)
  - Hyperventilation [None]
  - Diarrhoea [None]
  - Weight decreased [None]

NARRATIVE: CASE EVENT DATE: 20141014
